FAERS Safety Report 9618413 (Version 2)
Quarter: 2020Q3

REPORT INFORMATION
  Report Type: Report from Study
  Country: AU (occurrence: AU)
  Receive Date: 20131014
  Receipt Date: 20140923
  Transmission Date: 20201104
  Serious: Yes (Other)
  Sender: FDA-Public Use
  Company Number: AU-JNJFOC-20131003373

PATIENT
  Age: 76 Year
  Sex: Male

DRUGS (2)
  1. INFLIXIMAB, RECOMBINANT [Suspect]
     Active Substance: INFLIXIMAB
     Indication: CROHN^S DISEASE
     Route: 042
  2. INFLIXIMAB, RECOMBINANT [Suspect]
     Active Substance: INFLIXIMAB
     Route: 042

REACTIONS (5)
  - Squamous cell carcinoma [Recovered/Resolved]
  - Bowen^s disease [Recovered/Resolved]
  - Seborrhoeic keratosis [Recovered/Resolved]
  - Perichondritis [Recovered/Resolved]
  - Actinic keratosis [Recovered/Resolved]

NARRATIVE: CASE EVENT DATE: 20110414
